FAERS Safety Report 15773266 (Version 2)
Quarter: 2019Q1

REPORT INFORMATION
  Report Type: Report from Study
  Country: BR (occurrence: BR)
  Receive Date: 20181228
  Receipt Date: 20190211
  Transmission Date: 20190417
  Serious: Yes (Hospitalization, Other)
  Sender: FDA-Public Use
  Company Number: BR-ALXN-A201809674AA

PATIENT
  Age: 31 Year
  Sex: Female

DRUGS (8)
  1. LOSARTAN. [Concomitant]
     Active Substance: LOSARTAN
     Indication: HYPERTENSION
     Dosage: 50 MG, BID
     Route: 065
  2. FUROSEMIDE. [Concomitant]
     Active Substance: FUROSEMIDE
     Indication: HYPERTENSION
     Dosage: UNK, BID
     Route: 065
  3. COENZYME Q10 [Concomitant]
     Active Substance: UBIDECARENONE
     Indication: SUPPLEMENTATION THERAPY
     Dosage: UNK
     Route: 065
  4. SOLIRIS [Suspect]
     Active Substance: ECULIZUMAB
     Dosage: 1200 MG, Q2W
     Route: 042
     Dates: start: 20160913
  5. SOLIRIS [Suspect]
     Active Substance: ECULIZUMAB
     Indication: ATYPICAL HAEMOLYTIC URAEMIC SYNDROME
     Dosage: 900 MG, QW
     Route: 042
     Dates: start: 20160810, end: 20160831
  6. MULTIVITAMIN                       /00097801/ [Concomitant]
     Active Substance: VITAMINS
     Indication: SUPPLEMENTATION THERAPY
     Dosage: UNK
     Route: 065
  7. ARGININE ASPARTATE [Concomitant]
     Active Substance: ARGININE ASPARTATE
     Indication: DISEASE SUSCEPTIBILITY
     Dosage: UNK
     Route: 065
  8. ATENSINA [Concomitant]
     Active Substance: CLONIDINE
     Indication: HYPERTENSION
     Dosage: 6 MG, TID
     Route: 065

REACTIONS (13)
  - Pneumonia fungal [Recovered/Resolved]
  - Pulmonary oedema [Unknown]
  - Haemoptysis [Unknown]
  - Dyspnoea [Unknown]
  - Fatigue [Recovering/Resolving]
  - Nasopharyngitis [Recovered/Resolved]
  - Inappropriate schedule of product administration [Recovered/Resolved]
  - Upper respiratory fungal infection [Unknown]
  - Blood creatinine increased [Not Recovered/Not Resolved]
  - Asthenia [Recovering/Resolving]
  - Malaise [Unknown]
  - Immunodeficiency [Recovered/Resolved]
  - Influenza [Unknown]

NARRATIVE: CASE EVENT DATE: 20160810
